FAERS Safety Report 9886646 (Version 2)
Quarter: 2014Q3

REPORT INFORMATION
  Report Type: Spontaneous
  Country: US (occurrence: US)
  Receive Date: 20140210
  Receipt Date: 20140820
  Transmission Date: 20150326
  Serious: Yes (Other)
  Sender: FDA-Public Use
  Company Number: US-009507513-1402USA004336

PATIENT
  Sex: Female

DRUGS (1)
  1. NUVARING [Suspect]
     Active Substance: ETHINYL ESTRADIOL\ETONOGESTREL
     Indication: CONTRACEPTION
     Dosage: UNK
     Route: 067
     Dates: start: 20060225, end: 20080216

REACTIONS (5)
  - Amenorrhoea [Unknown]
  - Pulmonary embolism [Unknown]
  - Incorrect drug administration duration [Unknown]
  - Pulmonary embolism [Unknown]
  - Embolism venous [Unknown]

NARRATIVE: CASE EVENT DATE: 20070214
